FAERS Safety Report 9886251 (Version 1)
Quarter: 2014Q1

REPORT INFORMATION
  Report Type: Report from Study
  Country: US (occurrence: US)
  Receive Date: 20140210
  Receipt Date: 20140210
  Transmission Date: 20141002
  Serious: Yes (Death)
  Sender: FDA-Public Use
  Company Number: US-BAXTER-2014BAX006585

PATIENT
  Sex: 0

DRUGS (4)
  1. GAMMAGARD S/D [Suspect]
     Indication: OFF LABEL USE
     Dosage: 0.5 G/KG
     Route: 042
  2. GAMMAGARD S/D [Suspect]
     Indication: IMMUNE THROMBOCYTOPENIC PURPURA
  3. PREDNISONE [Suspect]
     Indication: PRODUCT USED FOR UNKNOWN INDICATION
     Dosage: 1.5-2 MG/KG
     Route: 048
  4. DEXAMETHASONE [Suspect]
     Indication: VOMITING
     Route: 058

REACTIONS (1)
  - Death [Fatal]
